FAERS Safety Report 10200042 (Version 1)
Quarter: 2014Q2

REPORT INFORMATION
  Report Type: Spontaneous
  Country: US (occurrence: US)
  Receive Date: 20140527
  Receipt Date: 20140527
  Transmission Date: 20141212
  Serious: No
  Sender: FDA-Public Use
  Company Number: US-NOVEN-14US009176

PATIENT
  Age: 8 Year
  Sex: Male
  Weight: 60.32 kg

DRUGS (1)
  1. DAYTRANA [Suspect]
     Indication: ATTENTION DEFICIT/HYPERACTIVITY DISORDER
     Dosage: 10 MG QD
     Route: 062
     Dates: start: 20140310, end: 20140312

REACTIONS (1)
  - Application site rash [Unknown]
